FAERS Safety Report 8397769-0 (Version None)
Quarter: 2012Q2

REPORT INFORMATION
  Report Type: 
  Country: None (occurrence: None)
  Receive Date: 20120529
  Receipt Date: 20120515
  Transmission Date: 20120825
  Serious: Yes (Other)
  Sender: FDA-Public Use
  Company Number: CRC-12-202

PATIENT
  Age: 38 Year
  Sex: Male
  Weight: 99.7913 kg

DRUGS (1)
  1. OXCARBAZEPINE [Suspect]
     Indication: CONVULSION PROPHYLAXIS
     Dosage: 300MG 2X/DAY; ORALLY
     Route: 048
     Dates: end: 20120514

REACTIONS (2)
  - CONVULSION [None]
  - ANTICONVULSANT DRUG LEVEL DECREASED [None]
